FAERS Safety Report 15326974 (Version 1)
Quarter: 2018Q3

REPORT INFORMATION
  Report Type: Spontaneous
  Country: US (occurrence: US)
  Receive Date: 20180823
  Receipt Date: 20180823
  Transmission Date: 20181010
  Serious: Yes (Other)
  Sender: FDA-Public Use
  Company Number: None

PATIENT

DRUGS (4)
  1. 10 ML BD LEUR?LOK TIP SYRINGE [Suspect]
     Active Substance: DEVICE
  2. ALTEPLASE. [Suspect]
     Active Substance: ALTEPLASE
  3. BD 10 ML LUER?LOK TIP SYRINGE [Suspect]
     Active Substance: DEVICE
     Dates: start: 20180816
  4. NOVOSEVEN [Suspect]
     Active Substance: COAGULATION FACTOR VIIA RECOMBINANT HUMAN

REACTIONS (2)
  - Product compounding quality issue [None]
  - Product contamination [None]

NARRATIVE: CASE EVENT DATE: 20180816
